FAERS Safety Report 5185310-5 (Version None)
Quarter: 2006Q4

REPORT INFORMATION
  Report Type: 
  Country: None (occurrence: None)
  Receive Date: 20061220
  Receipt Date: 20060729
  Transmission Date: 20070319
  Serious: Yes (Hospitalization)
  Sender: FDA-Public Use
  Company Number: NL-ELI_LILLY_AND_COMPANY-NL200608000281

PATIENT
  Age: 69 Year
  Sex: Female
  Weight: 38 kg

DRUGS (9)
  1. FORTEO [Suspect]
     Indication: OSTEOPOROSIS
     Dosage: 20 MG, UNK
     Route: 058
     Dates: start: 20050216, end: 20050601
  2. MORPHINE [Concomitant]
     Dosage: UNK, UNKNOWN
     Route: 065
  3. SERETIDE ^GLAXO WELLCOME^ [Concomitant]
     Dosage: UNK, UNKNOWN
     Route: 065
  4. OMEPRAZOLE [Concomitant]
     Dosage: UNK, UNKNOWN
     Route: 065
  5. LORMETAZEPAM [Concomitant]
     Dosage: UNK, UNKNOWN
     Route: 065
  6. ACETYLCYSTEINE [Concomitant]
     Dosage: UNK, UNKNOWN
     Route: 065
  7. OXAZEPAM [Concomitant]
     Dosage: UNK, UNKNOWN
     Route: 065
  8. ETALPHA [Concomitant]
     Dosage: UNK, UNKNOWN
     Route: 065
  9. HYDROCHLOROTHIAZIDE [Concomitant]
     Dosage: UNK, UNKNOWN
     Route: 065

REACTIONS (2)
  - BRONCHIAL CARCINOMA [None]
  - METASTASIS [None]
